FAERS Safety Report 8544101-5 (Version None)
Quarter: 2012Q3

REPORT INFORMATION
  Report Type: 
  Country: None (occurrence: None)
  Receive Date: 20120727
  Receipt Date: 20120723
  Transmission Date: 20120928
  Serious: Yes (Death)
  Sender: FDA-Public Use
  Company Number: TW-PFIZER INC-2012177749

PATIENT
  Age: 60 Year
  Sex: Male
  Weight: 49.2 kg

DRUGS (9)
  1. EVEROLIMUS [Suspect]
     Indication: RENAL CANCER METASTATIC
     Dosage: 10MG QD
     Route: 048
     Dates: start: 20120224, end: 20120712
  2. REPAGLINIDE [Concomitant]
     Indication: PROPHYLAXIS
     Dosage: 1MG TID
     Route: 048
     Dates: start: 20120626, end: 20120629
  3. ATORVASTATIN CALCIUM [Suspect]
     Indication: HYPERCHOLESTEROLAEMIA
     Dosage: 10MG BID
     Route: 048
     Dates: start: 20120529, end: 20120712
  4. AMLODIPINE [Concomitant]
     Indication: HYPERTENSION
     Dosage: 5 MG, QD
     Route: 048
     Dates: start: 20080815, end: 20120101
  5. NYSTATIN [Concomitant]
     Indication: MUCOSAL INFLAMMATION
     Dosage: 500000U QID
     Route: 048
     Dates: start: 20120529, end: 20120101
  6. METFORMIN [Concomitant]
     Indication: PROPHYLAXIS
     Dosage: 500 MG, QD
     Route: 048
     Dates: start: 20120710, end: 20120101
  7. ACETYLCYSTEINE [Concomitant]
     Indication: COUGH
     Dosage: 1 DF, TID
     Route: 048
     Dates: start: 20120710, end: 20120101
  8. PREDNISOLONE [Concomitant]
     Indication: DECREASED APPETITE
     Dosage: 5 MG, BID
     Route: 048
     Dates: start: 20120710, end: 20120712
  9. SORAFENIB TOSILATE [Suspect]
     Indication: METASTATIC RENAL CELL CARCINOMA
     Dosage: UNK
     Dates: start: 20110302, end: 20120224

REACTIONS (13)
  - HEPATITIS B [None]
  - METABOLIC ACIDOSIS [None]
  - COMA HEPATIC [None]
  - SEPSIS [None]
  - RENAL FAILURE ACUTE [None]
  - METASTATIC RENAL CELL CARCINOMA [None]
  - PROCEDURAL HYPOTENSION [None]
  - HEPATITIS FULMINANT [None]
  - NEOPLASM PROGRESSION [None]
  - BLOOD LACTIC ACID INCREASED [None]
  - HAEMODIALYSIS [None]
  - DISSEMINATED INTRAVASCULAR COAGULATION [None]
  - CATHETER SITE HAEMORRHAGE [None]
